FAERS Safety Report 12960323 (Version 1)
Quarter: 2016Q4

REPORT INFORMATION
  Report Type: Spontaneous
  Country: US (occurrence: US)
  Receive Date: 20161120
  Receipt Date: 20161120
  Transmission Date: 20170207
  Serious: No
  Sender: FDA-Public Use
  Company Number: None

PATIENT
  Age: 66 Year
  Sex: Female
  Weight: 55.8 kg

DRUGS (10)
  1. CEPHALEXIN. [Concomitant]
     Active Substance: CEPHALEXIN
  2. FLUOXETINE [Concomitant]
     Active Substance: FLUOXETINE HYDROCHLORIDE
  3. ESTRADIOL. [Concomitant]
     Active Substance: ESTRADIOL
  4. RIFAMPIN. [Suspect]
     Active Substance: RIFAMPIN
     Indication: INFECTION
     Dosage: QUANTITY:2 CAPSULE(S); TWICE A DAY; ORAL?
     Route: 048
     Dates: start: 20161011, end: 20161101
  5. BUPROPION XL [Concomitant]
     Active Substance: BUPROPION
  6. ALBUTEROL. [Concomitant]
     Active Substance: ALBUTEROL
  7. IBUPROFEN. [Concomitant]
     Active Substance: IBUPROFEN
  8. VITAMIN D [Concomitant]
     Active Substance: CHOLECALCIFEROL
  9. ZYRTEC [Concomitant]
     Active Substance: CETIRIZINE HYDROCHLORIDE
  10. GLUCOSAMINE/CHONDRITON [Concomitant]

REACTIONS (3)
  - Sciatica [None]
  - Sleep disorder [None]
  - Arthralgia [None]

NARRATIVE: CASE EVENT DATE: 20161019
